FAERS Safety Report 17297759 (Version 1)
Quarter: 2020Q1

REPORT INFORMATION
  Report Type: Spontaneous
  Country: CA (occurrence: CA)
  Receive Date: 20200121
  Receipt Date: 20200121
  Transmission Date: 20200409
  Serious: Yes (Other)
  Sender: FDA-Public Use
  Company Number: CA-JNJFOC-20200127838

PATIENT
  Age: 6 Decade
  Sex: Male

DRUGS (2)
  1. SIMPONI [Suspect]
     Active Substance: GOLIMUMAB
     Indication: RHEUMATOID ARTHRITIS
     Route: 058
  2. METHOTREXATE. [Concomitant]
     Active Substance: METHOTREXATE
     Route: 048

REACTIONS (9)
  - Diverticulum intestinal [Unknown]
  - Haemorrhoids [Unknown]
  - Herpes zoster [Unknown]
  - Nasopharyngitis [Unknown]
  - Product use issue [Unknown]
  - Pain [Unknown]
  - Off label use [Unknown]
  - Gastrointestinal tract adenoma [Unknown]
  - Musculoskeletal stiffness [Unknown]

NARRATIVE: CASE EVENT DATE: 2013
